FAERS Safety Report 16012995 (Version 1)
Quarter: 2019Q1

REPORT INFORMATION
  Report Type: Spontaneous
  Country: DE (occurrence: DE)
  Receive Date: 20190227
  Receipt Date: 20190227
  Transmission Date: 20190418
  Serious: Yes (Other)
  Sender: FDA-Public Use
  Company Number: DE-TEVA-2019-DE-1016113

PATIENT
  Age: 57 Year
  Sex: Male
  Weight: 80 kg

DRUGS (2)
  1. TRAMADOL. [Suspect]
     Active Substance: TRAMADOL
     Dosage: 200 MILLIGRAM DAILY;
     Route: 048
     Dates: start: 20010309, end: 20010409
  2. INSIDON [Interacting]
     Active Substance: OPIPRAMOL HYDROCHLORIDE
     Indication: DEPRESSION
     Dosage: 200 MILLIGRAM DAILY;
     Route: 048
     Dates: start: 20010309, end: 20010409

REACTIONS (5)
  - Psychotic disorder [Recovered/Resolved]
  - Psychomotor retardation [Recovered/Resolved]
  - Amnesia [Recovered/Resolved]
  - Drug interaction [Unknown]
  - Personality change [Recovered/Resolved]

NARRATIVE: CASE EVENT DATE: 200103
